FAERS Safety Report 8560123-2 (Version None)
Quarter: 2012Q3

REPORT INFORMATION
  Report Type: 
  Country: None (occurrence: None)
  Receive Date: 20120802
  Receipt Date: 20120723
  Transmission Date: 20120928
  Serious: Yes (Other)
  Sender: FDA-Public Use
  Company Number: DE-CELGENEUS-062-C5013-12050609

PATIENT
  Age: 74 Year
  Sex: Male
  Weight: 86 kg

DRUGS (9)
  1. MELPHALAN HYDROCHLORIDE [Suspect]
     Dosage: 10 MILLIGRAM
     Route: 065
     Dates: start: 20090114, end: 20090118
  2. REVLIMID [Suspect]
     Indication: MULTIPLE MYELOMA
     Dosage: 25 MILLIGRAM
     Route: 048
     Dates: start: 20110107, end: 20111208
  3. THALIDOMIDE [Suspect]
     Dosage: 200 MILLIGRAM
     Route: 048
     Dates: start: 20090114, end: 20090119
  4. DEXAMETHASONE [Concomitant]
     Dosage: 5.7143 MILLIGRAM
     Route: 048
     Dates: start: 20110107, end: 20111208
  5. PREDNISONE [Suspect]
     Dosage: 160 MILLIGRAM
     Route: 065
     Dates: start: 20090114, end: 20090118
  6. MELPHALAN HYDROCHLORIDE [Suspect]
     Indication: MULTIPLE MYELOMA
     Dosage: 20 MILLIGRAM
     Route: 065
     Dates: start: 20081016
  7. DEXAMETHASONE [Concomitant]
     Indication: MULTIPLE MYELOMA
     Dosage: 5.7143 MILLIGRAM
     Route: 065
     Dates: start: 20110107
  8. PREDNISONE [Suspect]
     Indication: MULTIPLE MYELOMA
     Dosage: 160 MILLIGRAM
     Route: 065
     Dates: start: 20081016
  9. THALIDOMIDE [Suspect]
     Indication: MULTIPLE MYELOMA
     Dosage: 200 MILLIGRAM
     Route: 048
     Dates: start: 20081016

REACTIONS (2)
  - SEBACEOUS CARCINOMA [None]
  - CARCINOMA IN SITU OF SKIN [None]
